FAERS Safety Report 4863686-3 (Version None)
Quarter: 2005Q4

REPORT INFORMATION
  Report Type: 
  Country: None (occurrence: None)
  Receive Date: 20051222
  Receipt Date: 20051010
  Transmission Date: 20060501
  Serious: No
  Sender: FDA-Public Use
  Company Number: US-GLAXOSMITHKLINE-A0577682A

PATIENT
  Age: 3 Month
  Sex: Female

DRUGS (3)
  1. FLOVENT [Suspect]
     Dosage: 2PUFF TWICE PER DAY
     Route: 055
     Dates: start: 20050701
  2. LASIX [Concomitant]
  3. ALDACTONE [Concomitant]

REACTIONS (2)
  - CRYING [None]
  - ORAL CANDIDIASIS [None]
